FAERS Safety Report 8249495-6 (Version None)
Quarter: 2012Q2

REPORT INFORMATION
  Report Type: 
  Country: None (occurrence: None)
  Receive Date: 20120402
  Receipt Date: 20120329
  Transmission Date: 20120825
  Serious: Yes (Other)
  Sender: FDA-Public Use
  Company Number: US-JNJFOC-20120214189

PATIENT
  Sex: Male

DRUGS (2)
  1. RISPERDAL CONSTA [Suspect]
     Route: 030
     Dates: start: 20110901, end: 20111224
  2. RISPERDAL CONSTA [Suspect]
     Indication: SCHIZOAFFECTIVE DISORDER
     Route: 030
     Dates: end: 20110901

REACTIONS (11)
  - TOXICITY TO VARIOUS AGENTS [None]
  - WITHDRAWAL SYNDROME [None]
  - MUSCLE TWITCHING [None]
  - WEIGHT INCREASED [None]
  - HAEMATOCHEZIA [None]
  - WEIGHT DECREASED [None]
  - MOTION SICKNESS [None]
  - DRUG DOSE OMISSION [None]
  - SCHIZOAFFECTIVE DISORDER [None]
  - BOWEL MOVEMENT IRREGULARITY [None]
  - DIABETES MELLITUS [None]
